FAERS Safety Report 14121088 (Version 1)
Quarter: 2017Q4

REPORT INFORMATION
  Report Type: Spontaneous
  Country: US (occurrence: US)
  Receive Date: 20171024
  Receipt Date: 20171024
  Transmission Date: 20180321
  Serious: No
  Sender: FDA-Public Use
  Company Number: US-SA-2017SA057322

PATIENT
  Age: 61 Year
  Sex: Male
  Weight: 102.05 kg

DRUGS (1)
  1. LUMIZYME [Suspect]
     Active Substance: ALGLUCOSIDASE ALFA
     Indication: GLYCOGEN STORAGE DISEASE TYPE II
     Route: 041
     Dates: start: 20161028

REACTIONS (3)
  - Headache [Unknown]
  - Nausea [Unknown]
  - Fatigue [Unknown]
